FAERS Safety Report 17292482 (Version 1)
Quarter: 2020Q1

REPORT INFORMATION
  Report Type: Spontaneous
  Country: US (occurrence: US)
  Receive Date: 20200101
  Receipt Date: 20200101
  Transmission Date: 20200409
  Serious: No
  Sender: FDA-Public Use
  Company Number: None

PATIENT
  Age: 63 Year
  Sex: Female

DRUGS (1)
  1. LEUKERAN [Suspect]
     Active Substance: CHLORAMBUCIL
     Indication: BREAST CANCER FEMALE
     Route: 048
     Dates: start: 201912

REACTIONS (2)
  - Madarosis [None]
  - Swelling of eyelid [None]

NARRATIVE: CASE EVENT DATE: 20200101
